FAERS Safety Report 10049903 (Version 1)
Quarter: 2014Q1

REPORT INFORMATION
  Report Type: Spontaneous
  Country: US (occurrence: None)
  Receive Date: 20140328
  Receipt Date: 20140328
  Transmission Date: 20141002
  Serious: No
  Sender: FDA-Public Use
  Company Number: AUR-APL-2014-02709

PATIENT
  Age: 16 Year
  Sex: Male

DRUGS (2)
  1. HYDROCODONE PARACETAMOL [Suspect]
     Indication: PRODUCT USED FOR UNKNOWN INDICATION
     Route: 048
  2. ALPRAZOLAM [Suspect]
     Indication: PRODUCT USED FOR UNKNOWN INDICATION
     Route: 048

REACTIONS (16)
  - Completed suicide [None]
  - Toxicity to various agents [None]
  - Dysarthria [None]
  - Exposure via ingestion [None]
  - Brain oedema [None]
  - Brain death [None]
  - Hypertension [None]
  - Pneumothorax [None]
  - Effusion [None]
  - Lactic acidosis [None]
  - Ischaemic hepatitis [None]
  - Dehydration [None]
  - Urine output increased [None]
  - Brain hypoxia [None]
  - Cardiac arrest [None]
  - Respiratory arrest [None]
